FAERS Safety Report 7245608-3 (Version None)
Quarter: 2011Q1

REPORT INFORMATION
  Report Type: 
  Country: None (occurrence: None)
  Receive Date: 20110126
  Receipt Date: 20110113
  Transmission Date: 20110831
  Serious: Yes (Hospitalization, Other)
  Sender: FDA-Public Use
  Company Number: PHHY2011US03686

PATIENT

DRUGS (1)
  1. VANCOMYCIN [Suspect]

REACTIONS (2)
  - NEPHROPATHY TOXIC [None]
  - CARDIAC FAILURE CONGESTIVE [None]
